FAERS Safety Report 5392744-2 (Version None)
Quarter: 2007Q3

REPORT INFORMATION
  Report Type: 
  Country: None (occurrence: None)
  Receive Date: 20070720
  Receipt Date: 20070710
  Transmission Date: 20080115
  Serious: Yes (Other)
  Sender: FDA-Public Use
  Company Number: FR-PFIZER INC-2007031513

PATIENT
  Sex: Female
  Weight: 58 kg

DRUGS (8)
  1. CHAMPIX [Suspect]
     Indication: SMOKING CESSATION THERAPY
     Dates: start: 20070226, end: 20070305
  2. PRINZIDE [Concomitant]
     Indication: HYPERTENSION
     Route: 048
  3. AMLODIPINE [Concomitant]
     Dates: start: 20060101
  4. PRAVASTATIN SODIUM [Concomitant]
     Dates: start: 20000101
  5. CLOPIDOGREL BISULFATE [Concomitant]
  6. RILMENIDINE DIHYDROGEN PHOSPHATE [Concomitant]
  7. ESOMEPRAZOLE MAGNESIUM [Concomitant]
     Indication: ARTERITIS
     Dates: start: 20040101
  8. BROMAZEPAM [Concomitant]
     Indication: ANXIETY
     Dates: start: 20000101

REACTIONS (2)
  - PRURITUS [None]
  - SKIN INFLAMMATION [None]
